FAERS Safety Report 18428383 (Version 4)
Quarter: 2022Q2

REPORT INFORMATION
  Report Type: Spontaneous
  Country: US (occurrence: US)
  Receive Date: 20201026
  Receipt Date: 20220425
  Transmission Date: 20220721
  Serious: No
  Sender: FDA-Public Use
  Company Number: US-INCYTE CORPORATION-2020IN008373

PATIENT

DRUGS (6)
  1. JAKAFI [Suspect]
     Active Substance: RUXOLITINIB
     Indication: Graft versus host disease
     Dosage: 5MG, 2 TABLETS BY MOUTH IN THE MORNING AND 1 TABLET IN THE EVENING
     Route: 048
     Dates: start: 20200722
  2. JAKAFI [Suspect]
     Active Substance: RUXOLITINIB
     Dosage: 5 MILLIGRAM, QD
     Route: 048
     Dates: start: 20200723
  3. JAKAFI [Suspect]
     Active Substance: RUXOLITINIB
     Dosage: 5 MILLIGRAM, QD
     Route: 048
     Dates: start: 202007
  4. JAKAFI [Suspect]
     Active Substance: RUXOLITINIB
     Dosage: 10MG 2 TABLETS IN THE MORNING AND 5MG 1 TABLET IN THE EVENING
     Route: 048
     Dates: start: 20211215
  5. JAKAFI [Suspect]
     Active Substance: RUXOLITINIB
     Dosage: 5MG, 2 TABLETS BY MOUTH IN THE MORNING AND 1 TABLET IN THE EVENING
     Route: 048
     Dates: start: 202107
  6. PEGASYS [Suspect]
     Active Substance: PEGINTERFERON ALFA-2A
     Indication: Product used for unknown indication
     Route: 065

REACTIONS (11)
  - Agitation [Unknown]
  - Irritability [Unknown]
  - Abdominal pain [Unknown]
  - Thirst [Unknown]
  - General physical condition abnormal [Unknown]
  - Abdominal pain upper [Unknown]
  - Malaise [Unknown]
  - Headache [Unknown]
  - Diarrhoea [Unknown]
  - Fatigue [Unknown]
  - Nausea [Unknown]
